FAERS Safety Report 21141647 (Version 11)
Quarter: 2022Q4

REPORT INFORMATION
  Report Type: Report from Study
  Country: BR (occurrence: None)
  Receive Date: 20220728
  Receipt Date: 20221010
  Transmission Date: 20230113
  Serious: Yes (Hospitalization)
  Sender: FDA-Public Use
  Company Number: BR-Eisai Medical Research-EC-2022-120053

PATIENT
  Age: 61 Year
  Sex: Male
  Weight: 121.6 kg

DRUGS (11)
  1. LENVATINIB [Suspect]
     Active Substance: LENVATINIB
     Indication: Clear cell renal cell carcinoma
     Dosage: STARTING DOSE AT 20 MG, FLUCTUATED DOSAGE
     Route: 048
     Dates: start: 20220419, end: 20220621
  2. LENVATINIB [Suspect]
     Active Substance: LENVATINIB
     Dosage: STARTING DOSE AT 14 MG, FLUCTUATED DOSAGE
     Route: 048
     Dates: start: 20220812
  3. QUAVONLIMAB [Suspect]
     Active Substance: QUAVONLIMAB
     Indication: Clear cell renal cell carcinoma
     Dosage: MK-1308A 425 MILLIGRAM (CONTAINS QUAVONLIMAB (MK-1308) 25MG +PEMBROLIZUMAB (MK-3475) 400 MG)
     Route: 042
     Dates: start: 20220419, end: 20220419
  4. CIPROFIBRATE [Concomitant]
     Active Substance: CIPROFIBRATE
     Dates: start: 20140615
  5. ALLOPURINOL [Concomitant]
     Active Substance: ALLOPURINOL
     Dates: start: 20140415
  6. ROSUVASTATIN [Concomitant]
     Active Substance: ROSUVASTATIN
     Dates: start: 20140615
  7. SILDENAFIL CITRATE [Concomitant]
     Active Substance: SILDENAFIL CITRATE
     Dates: start: 20170615
  8. LOSARTAN [Concomitant]
     Active Substance: LOSARTAN
     Dates: start: 20220420, end: 20220722
  9. PREDNISONE [Concomitant]
     Active Substance: PREDNISONE
     Dates: start: 20220612, end: 20220719
  10. URSODIOL [Concomitant]
     Active Substance: URSODIOL
     Dates: start: 20220513
  11. PEMBROLIZUMAB [Suspect]
     Active Substance: PEMBROLIZUMAB
     Dates: start: 20220419

REACTIONS (1)
  - Acute kidney injury [Recovered/Resolved]

NARRATIVE: CASE EVENT DATE: 20220719
